FAERS Safety Report 9621095 (Version 3)
Quarter: 2013Q4

REPORT INFORMATION
  Report Type: Spontaneous
  Country: US (occurrence: US)
  Receive Date: 20131015
  Receipt Date: 20131101
  Transmission Date: 20140711
  Serious: Yes (Hospitalization, Other)
  Sender: FDA-Public Use
  Company Number: US-BAYER-2013-123656

PATIENT
  Age: 39 Year
  Sex: Female

DRUGS (3)
  1. YASMIN [Suspect]
  2. YAZ [Suspect]
  3. RETAVASE [Concomitant]

REACTIONS (5)
  - Pulmonary embolism [None]
  - Vena cava thrombosis [None]
  - Thrombosis [None]
  - Deep vein thrombosis [None]
  - Pelvic venous thrombosis [None]
